FAERS Safety Report 11127865 (Version 4)
Quarter: 2015Q3

REPORT INFORMATION
  Report Type: Spontaneous
  Country: IT (occurrence: None)
  Receive Date: 20150519
  Receipt Date: 20150713
  Transmission Date: 20151125
  Serious: Yes (Death)
  Sender: FDA-Public Use
  Company Number: IT-2015-1839

PATIENT
  Age: 67 Year
  Sex: Female

DRUGS (12)
  1. METILPREDNISOLONE (METHYLPREDNISOLONE) [Concomitant]
  2. PIPERACILLIN AND TAZOBACTAM [Concomitant]
     Active Substance: PIPERACILLIN SODIUM\TAZOBACTAM SODIUM
  3. CLORFENAMINA (CHLORPHENAMINE MALEATE) [Concomitant]
  4. CARDICOR (BISOPROLOL FUMARATE) [Concomitant]
  5. PRAVASTATINA (PRAVASTATIN SODIUM) [Concomitant]
  6. HERCEPTIN [Suspect]
     Active Substance: TRASTUZUMAB
     Indication: BREAST CANCER
     Route: 042
     Dates: start: 20150424, end: 20150424
  7. LANSOPRAZOLO (LANSOPRAZOLE) [Concomitant]
  8. TRIATEC (RAMIPRIL) [Concomitant]
     Active Substance: RAMIPRIL
  9. PREDNISONE (PREDNISONE ACETATE) [Concomitant]
  10. COLECALCIFEROL (COLECALCIFEROL) [Concomitant]
  11. NAVELBINE [Suspect]
     Active Substance: VINORELBINE TARTRATE
     Indication: BREAST CANCER
     Route: 042
     Dates: start: 20150424, end: 20150424
  12. CLEXANE (ENOXAPARIN SODIUM) [Concomitant]
     Active Substance: ENOXAPARIN SODIUM

REACTIONS (13)
  - Coma [None]
  - Migraine [None]
  - Blindness [None]
  - Cognitive disorder [None]
  - Dizziness [None]
  - Tremor [None]
  - Infusion related reaction [None]
  - Neurological decompensation [None]
  - Hypotension [None]
  - Shock [None]
  - Chills [None]
  - Sopor [None]
  - Headache [None]

NARRATIVE: CASE EVENT DATE: 20150424
